FAERS Safety Report 5120196-6 (Version None)
Quarter: 2006Q3

REPORT INFORMATION
  Report Type: 
  Country: None (occurrence: None)
  Receive Date: 20060928
  Receipt Date: 20060914
  Transmission Date: 20061208
  Serious: Yes (Hospitalization)
  Sender: FDA-Public Use
  Company Number: 226642

PATIENT
  Age: 44 Year
  Sex: Male

DRUGS (2)
  1. RAPTIVA [Suspect]
     Indication: PSORIASIS
     Dates: start: 20030601, end: 20040101
  2. ZOCOR [Concomitant]

REACTIONS (2)
  - ERYSIPELAS [None]
  - WOUND [None]
